FAERS Safety Report 8971198 (Version 2)
Quarter: 2013Q1

REPORT INFORMATION
  Report Type: Spontaneous
  Country: US (occurrence: US)
  Receive Date: 20121217
  Receipt Date: 20130308
  Transmission Date: 20140127
  Serious: Yes (Death, Hospitalization)
  Sender: FDA-Public Use
  Company Number: US-GLAXOSMITHKLINE-A1005079A

PATIENT
  Age: 72 Year
  Sex: Male

DRUGS (3)
  1. ADVAIR [Suspect]
     Indication: EMPHYSEMA
     Route: 055
  2. VENTOLIN HFA [Suspect]
     Indication: EMPHYSEMA
     Route: 055
  3. NO CONCURRENT MEDICATION [Concomitant]

REACTIONS (5)
  - Pneumonia [Fatal]
  - Cerebrovascular accident [Fatal]
  - Cardiac disorder [Fatal]
  - Renal cancer [Unknown]
  - Bladder cancer [Unknown]
